FAERS Safety Report 9316322 (Version 2)
Quarter: 2013Q3

REPORT INFORMATION
  Report Type: Spontaneous
  Country: US (occurrence: US)
  Receive Date: 20130530
  Receipt Date: 20130717
  Transmission Date: 20140515
  Serious: No
  Sender: FDA-Public Use
  Company Number: US-009507513-1305USA016261

PATIENT
  Sex: Female

DRUGS (1)
  1. LOTRISONE [Suspect]
     Indication: TINEA INFECTION
     Dosage: UNK
     Dates: start: 201305

REACTIONS (1)
  - Rash [Unknown]
